FAERS Safety Report 19512157 (Version 1)
Quarter: 2021Q3

REPORT INFORMATION
  Report Type: Spontaneous
  Country: TW (occurrence: TW)
  Receive Date: 20210709
  Receipt Date: 20210709
  Transmission Date: 20211014
  Serious: Yes (Death, Other)
  Sender: FDA-Public Use
  Company Number: TW-SA-2021SA211243

PATIENT
  Age: 33 Year
  Sex: Male

DRUGS (1)
  1. MYOZYME [Suspect]
     Active Substance: ALGLUCOSIDASE ALFA
     Dosage: 20 MG/KG (1 VIAL CONTAINS 50MG), QOW
     Route: 042

REACTIONS (2)
  - Multiple organ dysfunction syndrome [Fatal]
  - Gastroenteritis [Unknown]

NARRATIVE: CASE EVENT DATE: 20210621
